FAERS Safety Report 17169624 (Version 2)
Quarter: 2020Q2

REPORT INFORMATION
  Report Type: Spontaneous
  Country: US (occurrence: US)
  Receive Date: 20191218
  Receipt Date: 20200529
  Transmission Date: 20200713
  Serious: Yes (Hospitalization)
  Sender: FDA-Public Use
  Company Number: US-VERTEX PHARMACEUTICALS-2019-012856

PATIENT
  Sex: Female

DRUGS (4)
  1. TRIKAFTA [Suspect]
     Active Substance: ELEXACAFTOR\IVACAFTOR\TEZACAFTOR
     Indication: CYSTIC FIBROSIS
     Dosage: 2 TABLETS (100 MG ELEXACAFTOR/ 50 MG TEZACAFTOR/ 75 MG IVACAFTOR) AM; 1 TABLET (150MG IVACAFTOR) PM
     Route: 048
     Dates: start: 20191112
  2. VITAMIN B [Concomitant]
     Active Substance: VITAMIN B
  3. CREON [Concomitant]
     Active Substance: PANCRELIPASE AMYLASE\PANCRELIPASE LIPASE\PANCRELIPASE PROTEASE
  4. PROAIR HFA [Concomitant]
     Active Substance: ALBUTEROL SULFATE

REACTIONS (2)
  - Headache [Recovered/Resolved]
  - Abdominal pain upper [Recovered/Resolved]

NARRATIVE: CASE EVENT DATE: 2019
